FAERS Safety Report 6300647-1 (Version None)
Quarter: 2009Q3

REPORT INFORMATION
  Report Type: 
  Country: None (occurrence: None)
  Receive Date: 20090803
  Receipt Date: 20090720
  Transmission Date: 20100115
  Serious: Yes (Hospitalization, Other)
  Sender: FDA-Public Use
  Company Number: ADR10922009

PATIENT
  Age: 50 Year
  Sex: Male

DRUGS (1)
  1. AMLODIPINE [Suspect]
     Dosage: 10 MG/DAILY

REACTIONS (12)
  - ATRIOVENTRICULAR BLOCK COMPLETE [None]
  - BACK PAIN [None]
  - CARDIOGENIC SHOCK [None]
  - CIRCULATORY COLLAPSE [None]
  - DRUG TOXICITY [None]
  - HAEMODIALYSIS [None]
  - HEPATIC ENZYME INCREASED [None]
  - HYPERGLYCAEMIA [None]
  - HYPERKALAEMIA [None]
  - METABOLIC ACIDOSIS [None]
  - OVERDOSE [None]
  - RENAL FAILURE ACUTE [None]
